FAERS Safety Report 6914115-7 (Version None)
Quarter: 2010Q3

REPORT INFORMATION
  Report Type: 
  Country: None (occurrence: None)
  Receive Date: 20100809
  Receipt Date: 20100803
  Transmission Date: 20110219
  Serious: Yes (Other)
  Sender: FDA-Public Use
  Company Number: US-BRISTOL-MYERS SQUIBB COMPANY-15225196

PATIENT
  Age: 66 Year
  Sex: Female

DRUGS (3)
  1. METFORMIN HCL [Suspect]
     Dates: end: 20100101
  2. LANTUS [Suspect]
     Indication: TYPE 2 DIABETES MELLITUS
     Dosage: LOT C246:1DF=30UNITS LOT C266:1DF=40UNITS ALSO PARENTERAL INJ 100IU
     Route: 058
     Dates: start: 20040101
  3. TEGRETOL [Suspect]
     Dates: start: 20090101

REACTIONS (3)
  - CEREBROVASCULAR ACCIDENT [None]
  - CONVULSION [None]
  - RENAL FUNCTION TEST ABNORMAL [None]
